FAERS Safety Report 9758706 (Version 1)
Quarter: 2013Q4

REPORT INFORMATION
  Report Type: Spontaneous
  Country: GB (occurrence: None)
  Receive Date: 20131216
  Receipt Date: 20131216
  Transmission Date: 20140711
  Serious: Yes (Congenital Anomaly)
  Sender: FDA-Public Use
  Company Number: 2013-01207(0)

PATIENT
  Sex: Male
  Weight: 3 kg

DRUGS (1)
  1. LEVETIRACETAM [Suspect]
     Indication: PARTIAL SEIZURES
     Dosage: 250 MG (UNKNOWN,DAILY),TRANSPLACENTAL

REACTIONS (1)
  - Umbilical hernia [None]
